FAERS Safety Report 20879599 (Version 1)
Quarter: 2022Q2

REPORT INFORMATION
  Report Type: Spontaneous
  Country: IN (occurrence: IN)
  Receive Date: 20220526
  Receipt Date: 20220526
  Transmission Date: 20220720
  Serious: Yes (Other)
  Sender: FDA-Public Use
  Company Number: IN-PFIZER INC-202101489735

PATIENT
  Age: 33 Year
  Sex: Female

DRUGS (4)
  1. PALBOCICLIB [Suspect]
     Active Substance: PALBOCICLIB
     Indication: Breast cancer metastatic
     Dosage: 125 MG, 3 WEEKS ON, 1 WEEK OFF
     Route: 048
     Dates: start: 20210827
  2. LETROZOLE [Concomitant]
     Active Substance: LETROZOLE
     Indication: Breast cancer metastatic
     Dosage: 2.5 MG, 1X/DAY
     Dates: start: 20210827
  3. ZOLADEX [Concomitant]
     Active Substance: GOSERELIN ACETATE
     Indication: Breast cancer metastatic
     Dosage: 3.6 MG, MONTHLY
     Dates: start: 20210827
  4. GOSERELIN [Concomitant]
     Active Substance: GOSERELIN
     Dosage: UNK
     Dates: start: 202108

REACTIONS (6)
  - Heart rate increased [Unknown]
  - Soft tissue disorder [Unknown]
  - Respiratory rate increased [Unknown]
  - Tenderness [Unknown]
  - Pain [Unknown]
  - Neoplasm progression [Unknown]

NARRATIVE: CASE EVENT DATE: 20220216
